FAERS Safety Report 7179220-1 (Version None)
Quarter: 2010Q4

REPORT INFORMATION
  Report Type: 
  Country: None (occurrence: None)
  Receive Date: 20101221
  Receipt Date: 20101213
  Transmission Date: 20110411
  Serious: Yes (Other)
  Sender: FDA-Public Use
  Company Number: BR-PFIZER INC-2010170283

PATIENT
  Age: 72 Year
  Sex: Female
  Weight: 78 kg

DRUGS (7)
  1. LYRICA [Suspect]
     Indication: FIBROMYALGIA
     Dosage: 75 MG, 2X/DAY
     Route: 048
     Dates: start: 20101101
  2. LYRICA [Suspect]
     Indication: OSTEOARTHRITIS
  3. METFORMIN HYDROCHLORIDE [Concomitant]
     Indication: DIABETES MELLITUS
     Dosage: UNK
  4. ENALAPRIL MALEATE [Concomitant]
     Indication: HYPERTENSION
     Dosage: UNK
  5. ALPRAZOLAM [Concomitant]
     Indication: SLEEP DISORDER
     Dosage: 2 MG, UNK
  6. FENOFIBRATE [Concomitant]
     Indication: LIPIDS INCREASED
     Dosage: UNK
  7. FENOFIBRATE [Concomitant]
     Indication: BLOOD TRIGLYCERIDES INCREASED

REACTIONS (9)
  - DIZZINESS [None]
  - DRUG ABUSER [None]
  - DRUG INEFFECTIVE [None]
  - DYSPHONIA [None]
  - LISTLESS [None]
  - PAIN [None]
  - PAIN IN EXTREMITY [None]
  - SPEECH DISORDER [None]
  - WEIGHT DECREASED [None]
